FAERS Safety Report 8233920-0 (Version None)
Quarter: 2012Q1

REPORT INFORMATION
  Report Type: 
  Country: None (occurrence: None)
  Receive Date: 20120326
  Receipt Date: 20120319
  Transmission Date: 20120608
  Serious: Yes (Other)
  Sender: FDA-Public Use
  Company Number: PHEH2012US005436

PATIENT
  Sex: Female
  Weight: 68.027 kg

DRUGS (7)
  1. AMPYRA [Concomitant]
  2. LORAZEPAM [Concomitant]
  3. BACLOFEN [Concomitant]
  4. GILENYA [Suspect]
     Dosage: 1 DF, QD
     Route: 048
     Dates: start: 20110301
  5. VITAMIN D [Concomitant]
  6. VITAMIN B-12 [Concomitant]
  7. ZOLOFT [Concomitant]

REACTIONS (3)
  - VENTRICULAR EXTRASYSTOLES [None]
  - BLOOD PRESSURE INCREASED [None]
  - HEART RATE IRREGULAR [None]
